FAERS Safety Report 25129746 (Version 1)
Quarter: 2025Q1

REPORT INFORMATION
  Report Type: Spontaneous
  Country: US (occurrence: US)
  Receive Date: 20250327
  Receipt Date: 20250327
  Transmission Date: 20250409
  Serious: Yes (Other)
  Sender: PFIZER
  Company Number: US-PFIZER INC-PV202500036285

PATIENT
  Age: 43 Year
  Sex: Male

DRUGS (4)
  1. KETOROLAC TROMETHAMINE [Suspect]
     Active Substance: KETOROLAC TROMETHAMINE
     Indication: Symptomatic treatment
     Route: 042
  2. DICYCLOMINE [Suspect]
     Active Substance: DICYCLOMINE HYDROCHLORIDE
     Indication: Colitis ulcerative
     Route: 042
  3. BACLOFEN [Concomitant]
     Active Substance: BACLOFEN
     Dosage: 5 MG, 3X/DAY
     Route: 048
  4. LIDOCAINE [Concomitant]
     Active Substance: LIDOCAINE
     Dosage: UNK, 1X/DAY (AS NEEDED)
     Route: 062

REACTIONS (3)
  - Incorrect route of product administration [Unknown]
  - Axillary vein thrombosis [Recovered/Resolved]
  - Superficial vein thrombosis [Recovered/Resolved]
